FAERS Safety Report 8157673-X (Version None)
Quarter: 2012Q1

REPORT INFORMATION
  Report Type: 
  Country: None (occurrence: None)
  Receive Date: 20120222
  Receipt Date: 20120219
  Transmission Date: 20120608
  Serious: Yes (Other)
  Sender: FDA-Public Use
  Company Number: JP-PFIZER INC-2012038761

PATIENT
  Age: 86 Year
  Sex: Female

DRUGS (13)
  1. NORVASC [Concomitant]
     Dosage: 2.5 MG, 1X/DAY
     Route: 048
  2. CANDESARTAN CILEXETIL [Concomitant]
     Dosage: 2 MG, 2X/DAY
     Route: 048
  3. ASPIRIN [Concomitant]
     Dosage: 81 MG, 1X/DAY
     Route: 048
  4. SIGMART [Concomitant]
     Dosage: 5 MG, 3X/DAY
     Route: 048
  5. NORVASC [Concomitant]
     Dosage: 5 MG, 1X/DAY
     Route: 048
  6. FERRO-GRADUMET [Concomitant]
     Dosage: 105 MG, 1X/DAY
     Route: 048
  7. HICEE [Concomitant]
     Dosage: 1 G, 1X/DAY
     Route: 048
  8. LASIX [Concomitant]
     Dosage: 20 MG, 1X/DAY
     Route: 048
  9. VOLTAREN [Concomitant]
     Dosage: UNK
     Route: 054
  10. LYRICA [Suspect]
     Indication: SPINAL COLUMN STENOSIS
     Dosage: 25 MG, 2X/DAY
     Route: 048
  11. LANSOPRAZOLE [Concomitant]
     Dosage: 15 MG, 1X/DAY
     Route: 048
  12. ALDACTONE [Concomitant]
     Indication: CARDIAC FAILURE
     Dosage: 25 MG, 2X/DAY
     Route: 048
  13. KETOPROFEN [Concomitant]
     Dosage: 40 MG, 1X/DAY
     Route: 061

REACTIONS (4)
  - ASPARTATE AMINOTRANSFERASE INCREASED [None]
  - ALANINE AMINOTRANSFERASE INCREASED [None]
  - CHOLELITHIASIS [None]
  - ABDOMINAL PAIN [None]
